FAERS Safety Report 26081149 (Version 1)
Quarter: 2025Q4

REPORT INFORMATION
  Report Type: Report from Study
  Country: EU (occurrence: EU)
  Receive Date: 20251124
  Receipt Date: 20251124
  Transmission Date: 20260117
  Serious: Yes (Other)
  Sender: SANOFI AVENTIS
  Company Number: EU-SA-2024SA315332

PATIENT
  Age: 55 Year
  Sex: Female

DRUGS (5)
  1. INSULIN GLARGINE [Suspect]
     Active Substance: INSULIN GLARGINE
     Indication: Type 2 diabetes mellitus
     Dosage: 62 IU, QD
     Route: 065
     Dates: start: 2021
  2. INSULIN GLARGINE [Suspect]
     Active Substance: INSULIN GLARGINE
     Dosage: 98 IU, QD
     Route: 065
  3. INSULIN GLARGINE [Suspect]
     Active Substance: INSULIN GLARGINE
     Dosage: 94 IU, QD
     Route: 058
     Dates: start: 20250110
  4. METFORMIN [Concomitant]
     Active Substance: METFORMIN HYDROCHLORIDE
     Indication: Type 2 diabetes mellitus
     Dosage: UNK
  5. RYBELSUS [Concomitant]
     Active Substance: SEMAGLUTIDE
     Dosage: UNK

REACTIONS (9)
  - Breast cancer [Recovered/Resolved]
  - Thyroid cancer [Recovered/Resolved]
  - Paraesthesia [Recovered/Resolved]
  - Nervousness [Recovering/Resolving]
  - Musculoskeletal pain [Unknown]
  - Visual impairment [Unknown]
  - Hyperglycaemia [Recovered/Resolved]
  - Blood glucose fluctuation [Recovering/Resolving]
  - Blood glucose increased [Recovering/Resolving]

NARRATIVE: CASE EVENT DATE: 20230101
